FAERS Safety Report 4769965-2 (Version None)
Quarter: 2005Q3

REPORT INFORMATION
  Report Type: 
  Country: None (occurrence: None)
  Receive Date: 20050914
  Receipt Date: 20050831
  Transmission Date: 20060218
  Serious: Yes (Hospitalization, Disabling)
  Sender: FDA-Public Use
  Company Number: 02100-JPN-05-0426

PATIENT
  Age: 81 Year
  Sex: Male

DRUGS (3)
  1. CILOSTAZOL [Suspect]
     Dosage: ORAL
     Route: 048
  2. WARFARIN POTASSIUM [Suspect]
     Dosage: ORAL
     Route: 048
  3. ASPIRIN [Suspect]

REACTIONS (8)
  - FEMORAL NECK FRACTURE [None]
  - HAEMORRHAGIC DIATHESIS [None]
  - INTERNATIONAL NORMALISED RATIO INCREASED [None]
  - MUSCLE HAEMORRHAGE [None]
  - MUSCLE SWELLING [None]
  - OEDEMA PERIPHERAL [None]
  - PAIN [None]
  - PNEUMONIA [None]
